FAERS Safety Report 5007571-5 (Version None)
Quarter: 2006Q2

REPORT INFORMATION
  Report Type: 
  Country: None (occurrence: None)
  Receive Date: 20060522
  Receipt Date: 20060509
  Transmission Date: 20061013
  Serious: Yes (Other)
  Sender: FDA-Public Use
  Company Number: PHEH2006US06498

PATIENT
  Sex: Female

DRUGS (1)
  1. FORADIL [Suspect]
     Indication: CHRONIC OBSTRUCTIVE PULMONARY DISEASE
     Dates: start: 20060501

REACTIONS (3)
  - COELIAC DISEASE [None]
  - DIARRHOEA [None]
  - GASTROINTESTINAL PAIN [None]
